FAERS Safety Report 19082103 (Version 2)
Quarter: 2021Q4

REPORT INFORMATION
  Report Type: Spontaneous
  Country: US (occurrence: US)
  Receive Date: 20210401
  Receipt Date: 20211026
  Transmission Date: 20220303
  Serious: No
  Sender: FDA-Public Use
  Company Number: US-SA-SAC20210330000068

PATIENT
  Sex: Male

DRUGS (1)
  1. DUPIXENT [Suspect]
     Active Substance: DUPILUMAB
     Indication: Asthma
     Dosage: 300 MG, QOW
     Route: 058
     Dates: start: 202007, end: 202012

REACTIONS (5)
  - Muscle spasms [Unknown]
  - Neck pain [Unknown]
  - Paraesthesia [Unknown]
  - Back pain [Unknown]
  - Product use issue [Unknown]
